FAERS Safety Report 10240132 (Version 2)
Quarter: 2014Q2

REPORT INFORMATION
  Report Type: Report from Study
  Country: FR (occurrence: FR)
  Receive Date: 20140617
  Receipt Date: 20140623
  Transmission Date: 20141212
  Serious: Yes (Life-Threatening)
  Sender: FDA-Public Use
  Company Number: FR-ROCHE-1415716

PATIENT
  Sex: 0

DRUGS (5)
  1. BEVACIZUMAB [Suspect]
     Indication: METASTATIC NEOPLASM
     Route: 065
  2. AFLIBERCEPT [Suspect]
     Indication: METASTATIC NEOPLASM
     Route: 065
  3. SUNITINIB [Suspect]
     Indication: METASTATIC NEOPLASM
     Route: 065
  4. SORAFENIB [Suspect]
     Indication: METASTATIC NEOPLASM
     Route: 065
  5. PAZOPANIB [Suspect]
     Indication: METASTATIC NEOPLASM
     Route: 065

REACTIONS (6)
  - Cardiac failure [Unknown]
  - Renal failure [Unknown]
  - Embolism arterial [Unknown]
  - Embolism venous [Unknown]
  - Hypertension [Unknown]
  - Proteinuria [Unknown]
